FAERS Safety Report 5314184-4 (Version None)
Quarter: 2007Q2

REPORT INFORMATION
  Report Type: 
  Country: None (occurrence: None)
  Receive Date: 20070425
  Receipt Date: 20070419
  Transmission Date: 20071010
  Serious: No
  Sender: FDA-Public Use
  Company Number: TAP2007Q00481

PATIENT
  Age: 78 Year
  Sex: Male

DRUGS (13)
  1. LUPRON DEPOT-3 [Suspect]
     Indication: PROSTATE CANCER
     Dosage: 22.5 MG, 1 IN 3 M, INTRAMUSCULAR
     Route: 030
     Dates: start: 20020101
  2. TYLENOL ARTHRITIC (PARACETAMOL) [Concomitant]
  3. GLUCOSAMINE (GLUCOSAMINE) [Concomitant]
  4. ASPIRIN [Concomitant]
  5. METFORMIN HCL (METFORMIN HYDROCHLORIDE) [Concomitant]
  6. ARICEPT [Concomitant]
  7. CYPROTERONE (CYPROTERONE) [Concomitant]
  8. ALTACE [Concomitant]
  9. DIDRONEL [Concomitant]
  10. LIPITOR [Concomitant]
  11. VOLTAREN [Concomitant]
  12. FERROUS GLUCONATE (FERROUS GLUCONATE) [Concomitant]
  13. VITAMIN B12 [Concomitant]

REACTIONS (3)
  - BRAIN NEOPLASM [None]
  - DEMENTIA ALZHEIMER'S TYPE [None]
  - MACULAR DEGENERATION [None]
